FAERS Safety Report 9363687 (Version 1)
Quarter: 2013Q2

REPORT INFORMATION
  Report Type: Spontaneous
  Country: US (occurrence: US)
  Receive Date: 20130624
  Receipt Date: 20130627
  Transmission Date: 20140414
  Serious: Yes (Other)
  Sender: FDA-Public Use
  Company Number: US-JNJFOC-20130613301

PATIENT
  Sex: Male
  Weight: 61.24 kg

DRUGS (3)
  1. ROGAINE FOR MEN ES FOAM UNSCENTED [Suspect]
     Indication: ALOPECIA
     Dosage: 1/2 CAP
     Route: 061
     Dates: start: 201305, end: 20130618
  2. ROGAINE FOR MEN ES FOAM UNSCENTED [Suspect]
     Indication: ALOPECIA
     Dosage: STARTED USING NOVEMBER OR DECEMBER 2012; 1/2 CAP
     Route: 061
     Dates: start: 2012, end: 201303
  3. CENTRUM MULTIVITAMINS [Concomitant]
     Indication: VITAMIN SUPPLEMENTATION
     Dosage: 1 PILL
     Route: 065

REACTIONS (2)
  - Dyspnoea [Not Recovered/Not Resolved]
  - Drug ineffective [Not Recovered/Not Resolved]
